FAERS Safety Report 9798693 (Version 1)
Quarter: 2014Q1

REPORT INFORMATION
  Report Type: Spontaneous
  Country: US (occurrence: US)
  Receive Date: 20140106
  Receipt Date: 20140106
  Transmission Date: 20141002
  Serious: No
  Sender: FDA-Public Use
  Company Number: US-GILEAD-2010-0029752

PATIENT
  Sex: Female

DRUGS (9)
  1. LETAIRIS [Suspect]
     Indication: PULMONARY ARTERIAL HYPERTENSION
     Route: 048
     Dates: start: 20100414
  2. LISINOPRIL [Concomitant]
  3. LEVOTHYROXIN [Concomitant]
  4. SPIRONOLACTONE [Concomitant]
  5. WARFARIN [Concomitant]
  6. ASA [Concomitant]
  7. TYLENOL [Concomitant]
  8. MUCINEX [Concomitant]
  9. ADCIRCA [Concomitant]

REACTIONS (4)
  - Decreased appetite [Unknown]
  - Fatigue [Unknown]
  - Abdominal pain [Unknown]
  - Swelling [Unknown]
